FAERS Safety Report 21828750 (Version 4)
Quarter: 2023Q2

REPORT INFORMATION
  Report Type: Report from Study
  Country: US (occurrence: US)
  Receive Date: 20230106
  Receipt Date: 20230509
  Transmission Date: 20230721
  Serious: Yes (Other)
  Sender: FDA-Public Use
  Company Number: US-ABBVIE-4259701

PATIENT
  Sex: Female

DRUGS (2)
  1. IMBRUVICA [Suspect]
     Active Substance: IBRUTINIB
     Indication: Chronic lymphocytic leukaemia
     Dosage: FORM STRENGTH: 420MG
     Route: 048
  2. IMBRUVICA [Suspect]
     Active Substance: IBRUTINIB
     Indication: Chronic lymphocytic leukaemia
     Dosage: FORM STRENGTH: 420MG
     Route: 048
     Dates: end: 20230421

REACTIONS (6)
  - Surgery [Unknown]
  - Muscular weakness [Not Recovered/Not Resolved]
  - Tremor [Not Recovered/Not Resolved]
  - Dyspnoea [Not Recovered/Not Resolved]
  - Nausea [Unknown]
  - Asthenia [Not Recovered/Not Resolved]
